FAERS Safety Report 17401598 (Version 1)
Quarter: 2020Q1

REPORT INFORMATION
  Report Type: Spontaneous
  Country: FR (occurrence: FR)
  Receive Date: 20200211
  Receipt Date: 20200211
  Transmission Date: 20200409
  Serious: Yes (Hospitalization, Other)
  Sender: FDA-Public Use
  Company Number: FR-JAZZ-2017-FR-010102

PATIENT

DRUGS (15)
  1. VINCRISTINE [Concomitant]
     Active Substance: VINCRISTINE
     Indication: ACUTE LYMPHOCYTIC LEUKAEMIA
     Dosage: 0.39 MG, UNK.
     Route: 041
     Dates: start: 20170623
  2. DAUNORUBICIN [Concomitant]
     Active Substance: DAUNORUBICIN
     Indication: ACUTE LYMPHOCYTIC LEUKAEMIA
     Dosage: 16 MG, UNK
     Route: 041
     Dates: start: 20170630
  3. DAUNORUBICIN [Concomitant]
     Active Substance: DAUNORUBICIN
     Dosage: 16 MG, UNK
     Route: 041
     Dates: start: 20170705
  4. RIVOTRIL [Concomitant]
     Active Substance: CLONAZEPAM
     Dosage: 4 DROPS TID
  5. VITAMIN B1 W/VITAMIN B6 [Concomitant]
     Active Substance: PYRIDOXINE HYDROCHLORIDE\THIAMINE HYDROCHLORIDE
     Indication: PRODUCT USED FOR UNKNOWN INDICATION
     Dosage: 1 TAB DAILY
  6. ASPARAGINASE [Suspect]
     Active Substance: ASPARAGINASE
     Dosage: 3120 IU, 1HOUR (C1 DAY 5)
     Route: 041
     Dates: start: 20170626, end: 20170626
  7. ASPARAGINASE [Suspect]
     Active Substance: ASPARAGINASE
     Dosage: 3120 IU, 1HOUR (C1 DAY 3)
     Route: 041
     Dates: start: 20170623, end: 20170623
  8. FLIXOTIDE [Concomitant]
     Active Substance: FLUTICASONE PROPIONATE
     Indication: PRODUCT USED FOR UNKNOWN INDICATION
     Dosage: 50 MG, 2 PUFFS MORNING AND EVENING DURING THE WINTER
  9. RIVOTRIL [Concomitant]
     Active Substance: CLONAZEPAM
     Indication: PRODUCT USED FOR UNKNOWN INDICATION
     Dosage: 3 DROPS MORNING, MIDDAY AND EVENING
  10. ASPARAGINASE [Suspect]
     Active Substance: ASPARAGINASE
     Indication: B-CELL TYPE ACUTE LEUKAEMIA
     Dosage: 3120 IU, 1HOUR (DAY 10 INTENSIFICAITON)
     Route: 041
     Dates: start: 20170630, end: 20170630
  11. ASPARAGINASE [Suspect]
     Active Substance: ASPARAGINASE
     Dosage: 3120 IU, 1HOUR (C1 DAY 8)
     Route: 041
     Dates: start: 20170628, end: 20170628
  12. PREDNISONE. [Concomitant]
     Active Substance: PREDNISONE
     Indication: PRODUCT USED FOR UNKNOWN INDICATION
     Dosage: 20MG, QD
     Dates: start: 20170622, end: 20170706
  13. BACTRIM [Concomitant]
     Active Substance: SULFAMETHOXAZOLE\TRIMETHOPRIM
     Indication: PRODUCT USED FOR UNKNOWN INDICATION
     Dosage: 200MG, MON, WED, FRI
  14. VINCRISTINE [Concomitant]
     Active Substance: VINCRISTINE
     Dosage: 0.39 MG, UNK.
     Dates: start: 20170630
  15. PREDNISONE. [Concomitant]
     Active Substance: PREDNISONE
     Dosage: DOSAGE TAILED OFF
     Dates: start: 20170707, end: 20170713

REACTIONS (4)
  - Anaphylactic reaction [Recovered/Resolved]
  - Productive cough [Recovering/Resolving]
  - Rhonchi [Unknown]
  - Urinary tract infection [Unknown]

NARRATIVE: CASE EVENT DATE: 20170628
